FAERS Safety Report 19956995 (Version 1)
Quarter: 2021Q4

REPORT INFORMATION
  Report Type: Spontaneous
  Country: US (occurrence: IN)
  Receive Date: 20211014
  Receipt Date: 20211014
  Transmission Date: 20220303
  Serious: Yes (Other)
  Sender: FDA-Public Use
  Company Number: US-BAXTER-2021BAX031448

PATIENT
  Age: 35 Year
  Sex: Female

DRUGS (25)
  1. CYCLOPHOSPHAMIDE [Suspect]
     Active Substance: CYCLOPHOSPHAMIDE
     Indication: Breast cancer metastatic
     Dosage: CYCLE1; NEO ADJUVANT CHEMOTHERAPY (3-WEEKLY AC REGIMEN)
     Route: 065
     Dates: start: 20170111
  2. CYCLOPHOSPHAMIDE [Suspect]
     Active Substance: CYCLOPHOSPHAMIDE
     Dosage: CYCLE2; NEO ADJUVANT CHEMOTHERAPY (3-WEEKLY AC REGIMEN)
     Route: 065
     Dates: start: 20170131
  3. CYCLOPHOSPHAMIDE [Suspect]
     Active Substance: CYCLOPHOSPHAMIDE
     Dosage: 3 CYCLES CMF BASED CHEMOTHERAPY
     Route: 065
     Dates: start: 20210108, end: 202103
  4. CYCLOPHOSPHAMIDE [Suspect]
     Active Substance: CYCLOPHOSPHAMIDE
     Dosage: 2 CYCLES OF ENDOXAN + METHOTREXATE + 5-FU + INJ. XGEVA
     Route: 065
     Dates: start: 202105, end: 20210529
  5. METHOTREXATE [Suspect]
     Active Substance: METHOTREXATE
     Indication: Breast cancer metastatic
     Dosage: 3 CYCLES CMF BASED CHEMOTHERAPY
     Route: 065
     Dates: start: 20210108, end: 202103
  6. METHOTREXATE [Suspect]
     Active Substance: METHOTREXATE
     Dosage: 2 CYCLES OF ENDOXAN + METHOTREXATE + 5-FU + INJ. XGEVA
     Route: 065
     Dates: start: 202105, end: 20210529
  7. FLUOROURACIL [Suspect]
     Active Substance: FLUOROURACIL
     Indication: Breast cancer metastatic
     Dosage: 3 CYCLES CMF BASED CHEMOTHERAPY
     Route: 065
     Dates: start: 20210108, end: 202103
  8. FLUOROURACIL [Suspect]
     Active Substance: FLUOROURACIL
     Dosage: 2 CYCLES OF ENDOXAN + METHOTREXATE + 5-FU + INJ. XGEVA
     Route: 065
     Dates: start: 202105, end: 20210529
  9. ADRIAMYCIN [Suspect]
     Active Substance: DOXORUBICIN HYDROCHLORIDE
     Indication: Breast cancer metastatic
     Dosage: CYCLE 1; NEO ADJUVANT CHEMOTHERAPY (3-WEEKLY AC REGIMEN)
     Route: 065
     Dates: start: 20170111
  10. ADRIAMYCIN [Suspect]
     Active Substance: DOXORUBICIN HYDROCHLORIDE
     Dosage: CYCLE 2; NEO ADJUVANT CHEMOTHERAPY (3-WEEKLY AC REGIMEN)
     Route: 065
     Dates: start: 20170131
  11. PACLITAXEL [Suspect]
     Active Substance: PACLITAXEL
     Indication: Breast cancer metastatic
     Dosage: CYCLE 1 CHEMOTHERAPY (PACLITAXEL + CARBOPLATIN)
     Route: 065
     Dates: start: 20170308
  12. PACLITAXEL [Suspect]
     Active Substance: PACLITAXEL
     Dosage: CYCLE 2 CHEMOTHERAPY (PACLITAXEL + CARBOPLATIN)
     Route: 065
     Dates: start: 20170315
  13. PACLITAXEL [Suspect]
     Active Substance: PACLITAXEL
     Dosage: 8 CYCLES OF WEEKLY PACLITAXEL BASED CHEMOTHERAPY
     Route: 065
     Dates: start: 20170401, end: 20170513
  14. CARBOPLATIN [Suspect]
     Active Substance: CARBOPLATIN
     Indication: Breast cancer metastatic
     Dosage: CYCLE 1 CHEMOTHERAPY (PACLITAXEL + CARBOPLATIN)
     Route: 065
     Dates: start: 20170308
  15. CARBOPLATIN [Suspect]
     Active Substance: CARBOPLATIN
     Dosage: CYCLE 2 CHEMOTHERAPY (PACLITAXEL + CARBOPLATIN)
     Route: 065
     Dates: start: 20170315
  16. CARBOPLATIN [Suspect]
     Active Substance: CARBOPLATIN
     Dosage: CYCLE 4 AND 3 MORE CYCLES OF CHEMOTHERAPY (GEMCITABINE100MG + CARBOPLATIN 240MG + ZOLEDRONIC ACID).
     Route: 065
     Dates: start: 20200508, end: 20200709
  17. CISPLATIN [Suspect]
     Active Substance: CISPLATIN
     Indication: Breast cancer metastatic
     Dosage: 3 CYCLES OF CHEMOTHERAPY (GEMCITABINE 1400MG + CISPLATIN 70MG + ZOLEDRONIC ACID).
     Route: 065
     Dates: start: 20200218, end: 20200417
  18. GEMCITABINE [Suspect]
     Active Substance: GEMCITABINE
     Indication: Breast cancer metastatic
     Dosage: 3 CYCLES OF CHEMOTHERAPY (GEMCITABINE 1400MG + CISPLATIN 70MG + ZOLEDRONIC ACID).
     Route: 065
     Dates: start: 20200218, end: 20200417
  19. GEMCITABINE [Suspect]
     Active Substance: GEMCITABINE
     Dosage: CYCLE 4 AND 3 MORE CYCLES OF CHEMOTHERAPY (GEMCITABINE100MG + CARBOPLATIN 240MG + ZOLEDRONIC ACID).
     Route: 065
     Dates: start: 20200508, end: 20200709
  20. TAMOXIFEN [Suspect]
     Active Substance: TAMOXIFEN
     Indication: Breast cancer metastatic
     Dosage: TABLET
     Route: 065
  21. ZOLEDRONIC ACID [Suspect]
     Active Substance: ZOLEDRONIC ACID
     Indication: Breast cancer metastatic
     Dosage: 3 CYCLES OF CHEMOTHERAPY (GEMCITABINE 1400MG + CISPLATIN 70MG + ZOLEDRONIC ACID).
     Route: 065
     Dates: start: 20200218, end: 20200417
  22. ZOLEDRONIC ACID [Suspect]
     Active Substance: ZOLEDRONIC ACID
     Dosage: CYCLE 4 AND 3 MORE CYCLES OF CHEMOTHERAPY (GEMCITABINE100MG + CARBOPLATIN 240MG + ZOLEDRONIC ACID).
     Route: 065
     Dates: start: 20200508, end: 20200709
  23. ZOLEDRONIC ACID [Suspect]
     Active Substance: ZOLEDRONIC ACID
     Dosage: 3 CYCLES OF HALAVEN + ZOLEDRONIC ACID
     Route: 065
     Dates: start: 202011, end: 202101
  24. HALAVEN [Suspect]
     Active Substance: ERIBULIN MESYLATE
     Indication: Breast cancer metastatic
     Dosage: 3 CYCLES OF HALAVEN + ZOLEDRONIC ACID
     Route: 065
     Dates: start: 202011, end: 202101
  25. XGEVA [Suspect]
     Active Substance: DENOSUMAB
     Indication: Breast cancer metastatic
     Dosage: 2 CYCLES OF ENDOXAN + METHOTREXATE + 5-FU + INJ. XGEVA
     Route: 065
     Dates: start: 202105, end: 20210529

REACTIONS (4)
  - Neoplasm progression [Unknown]
  - Hypoacusis [Unknown]
  - Back pain [Unknown]
  - Pleural effusion [Unknown]
